FAERS Safety Report 10035053 (Version 1)
Quarter: 2014Q1

REPORT INFORMATION
  Report Type: Spontaneous
  Country: US (occurrence: None)
  Receive Date: 20140306
  Receipt Date: 20140306
  Transmission Date: 20141002
  Serious: Yes (Hospitalization)
  Sender: FDA-Public Use
  Company Number: 163-21880-13062788

PATIENT
  Age: 70 Year
  Sex: Female

DRUGS (9)
  1. REVLIMID (LENALIDOMIDE) (CAPSULES) [Suspect]
     Indication: PLASMA CELL MYELOMA
     Dosage: 21 IN 21 D
     Route: 048
     Dates: start: 20130218
  2. ALLOPURINOL (ALLOPURINOL) [Concomitant]
  3. ATENOLOL (ATENOLOL) [Concomitant]
  4. ASPIRIN EC LOW DOSE (ACETYLSAL AC W/CAFFE /CALCIUM CAR/CITRIC AC) [Concomitant]
  5. FERROUS SULFATE (FERROUS SULFATE) [Concomitant]
  6. HYDROXYUREA (HYDROXYCARBAMIDE) [Concomitant]
  7. LEVOTHYROXINE SODIUM (LEVOTHYROXINE SODIUM) [Concomitant]
  8. MICARDIS HCT (MICARDIS HCT) [Concomitant]
  9. NIFEDIAC CC (NIFEDIPINE) [Concomitant]

REACTIONS (1)
  - Pyrexia [None]
